FAERS Safety Report 5807485-4 (Version None)
Quarter: 2008Q3

REPORT INFORMATION
  Report Type: 
  Country: None (occurrence: None)
  Receive Date: 20080711
  Receipt Date: 20031208
  Transmission Date: 20090109
  Serious: Yes (Death)
  Sender: FDA-Public Use
  Company Number: US-BAXTER-2007BH010030

PATIENT
  Sex: Male

DRUGS (2)
  1. SODIUM CHLORIDE 0.9% IN PLASTIC CONTAINER [Suspect]
     Indication: DRUG USE FOR UNKNOWN INDICATION
     Dosage: DOSE UNIT:UNKNOWN
     Route: 042
  2. SODIUM CHLORIDE 0.9% IN PLASTIC CONTAINER [Suspect]
     Dosage: DOSE UNIT:UNKNOWN
     Route: 042

REACTIONS (1)
  - DEATH [None]
